FAERS Safety Report 5096302-9 (Version None)
Quarter: 2006Q3

REPORT INFORMATION
  Report Type: 
  Country: None (occurrence: None)
  Receive Date: 20060905
  Receipt Date: 20060824
  Transmission Date: 20061208
  Serious: Yes (Hospitalization)
  Sender: FDA-Public Use
  Company Number: FR-AVENTIS-200612940FR

PATIENT
  Age: 38 Year
  Sex: Male

DRUGS (6)
  1. FLAGYL ^AVENTIS^ [Suspect]
     Indication: APLASIA
     Route: 042
     Dates: start: 20060628, end: 20060707
  2. TRAMADOL HCL [Suspect]
     Indication: APLASIA
     Route: 048
     Dates: start: 20060728, end: 20060730
  3. AMIKLIN [Suspect]
     Indication: APLASIA
     Route: 042
     Dates: start: 20060727, end: 20060804
  4. CYMEVAN [Suspect]
     Indication: APLASIA
     Route: 042
     Dates: start: 20060727, end: 20060729
  5. TIENAM [Suspect]
     Indication: APLASIA
     Route: 042
     Dates: start: 20060727, end: 20060804
  6. VFEND [Suspect]
     Indication: APLASIA
     Route: 042
     Dates: start: 20060727, end: 20060731

REACTIONS (2)
  - RASH MACULO-PAPULAR [None]
  - STEVENS-JOHNSON SYNDROME [None]
